FAERS Safety Report 9166150 (Version 1)
Quarter: 2013Q1

REPORT INFORMATION
  Report Type: Spontaneous
  Country: FR (occurrence: FR)
  Receive Date: 20130315
  Receipt Date: 20130315
  Transmission Date: 20140127
  Serious: Yes (Other)
  Sender: FDA-Public Use
  Company Number: FR-009507513-1303FRA003881

PATIENT
  Age: 77 Year
  Sex: Male

DRUGS (7)
  1. SINEMET [Suspect]
     Indication: PARKINSON^S DISEASE
     Dosage: 7.5 DF, QD
     Route: 048
     Dates: start: 20120320
  2. STALEVO [Suspect]
     Indication: PRODUCT USED FOR UNKNOWN INDICATION
     Dosage: 5 DF, QD
     Route: 048
     Dates: start: 20120320
  3. TRANXENE [Suspect]
     Indication: PRODUCT USED FOR UNKNOWN INDICATION
     Dosage: 1 DF, TID
     Route: 048
     Dates: start: 20120320, end: 20120328
  4. GLUCOR [Concomitant]
     Dosage: 100 MG, BID
     Route: 048
  5. MOTILIUM [Concomitant]
     Dosage: 2 DF, TID
     Route: 048
  6. PRETERAX (INDAPAMIDE (+) PERINDOPRIL ARGININE) [Concomitant]
     Dosage: 1 DF, QD
     Route: 048
  7. TADENAN [Concomitant]
     Dosage: 1 DF, BID
     Route: 048

REACTIONS (4)
  - Aggression [Recovered/Resolved]
  - Abnormal behaviour [Recovered/Resolved]
  - Accidental overdose [Unknown]
  - Disturbance in attention [None]
